FAERS Safety Report 21145511 (Version 11)
Quarter: 2022Q4

REPORT INFORMATION
  Report Type: Report from Study
  Country: CA (occurrence: None)
  Receive Date: 20220729
  Receipt Date: 20221209
  Transmission Date: 20230112
  Serious: Yes (Hospitalization)
  Sender: FDA-Public Use
  Company Number: CA-ROCHE-2972753

PATIENT
  Age: 60 Year
  Sex: Female
  Weight: 94.1 kg

DRUGS (55)
  1. COBIMETINIB [Suspect]
     Active Substance: COBIMETINIB
     Indication: Non-small cell lung cancer metastatic
     Dosage: START DATE OF MOST RECENT DOSE (60 MG) OF STUDY DRUG PRIOR TO AE/SAE: 01/DEC/2021?MOST RECENT DOSE (
     Route: 048
     Dates: start: 20210722
  2. VEMURAFENIB [Suspect]
     Active Substance: VEMURAFENIB
     Indication: Non-small cell lung cancer metastatic
     Dosage: START DATE OF MOST RECENT DOSE (480 MG) OF STUDY DRUG PRIOR TO AE/SAE : 01/DEC/2021.?DOSE CONCENTRAT
     Route: 048
     Dates: start: 20210722
  3. ATEZOLIZUMAB [Suspect]
     Active Substance: ATEZOLIZUMAB
     Indication: Non-small cell lung cancer metastatic
     Dosage: START DATE OF MOST RECENT DOSE OF STUDY DRUG PRIOR TO AE/SAE : 18/NOV/2021?START DATE OF MOST RECENT
     Route: 041
     Dates: start: 20210826
  4. HYDROMORPHONE [Concomitant]
     Active Substance: HYDROMORPHONE
     Indication: Non-cardiac chest pain
     Route: 048
     Dates: start: 20210610, end: 20211125
  5. HYDROMORPHONE [Concomitant]
     Active Substance: HYDROMORPHONE
     Indication: Back pain
     Route: 048
     Dates: start: 20211213
  6. HYDROMORPHONE [Concomitant]
     Active Substance: HYDROMORPHONE
     Route: 048
     Dates: start: 20210813
  7. HYDROMORPHONE [Concomitant]
     Active Substance: HYDROMORPHONE
     Route: 042
     Dates: start: 20220725, end: 20220725
  8. LORAZEPAM [Concomitant]
     Active Substance: LORAZEPAM
     Indication: Anxiety
     Route: 048
     Dates: start: 202106
  9. POLYETHYLENE GLYCOL 3350 [Concomitant]
     Active Substance: POLYETHYLENE GLYCOL 3350
     Indication: Constipation
     Dosage: 1 OTHER
     Route: 048
     Dates: start: 20210622
  10. SENNA [Concomitant]
     Active Substance: SENNA LEAF\SENNOSIDES\SENNOSIDES A AND B
     Indication: Constipation
     Dosage: 2 TABLET
     Route: 048
     Dates: start: 20210706
  11. TRELEGY ELLIPTA [Concomitant]
     Active Substance: FLUTICASONE FUROATE\UMECLIDINIUM BROMIDE\VILANTEROL TRIFENATATE
     Indication: Chronic obstructive pulmonary disease
     Dosage: 1 PUFF
     Route: 055
     Dates: start: 2021
  12. LATANOPROSTENE BUNOD [Concomitant]
     Active Substance: LATANOPROSTENE BUNOD
     Indication: Glaucoma
     Dates: start: 2019, end: 20220303
  13. ALBUTEROL [Concomitant]
     Active Substance: ALBUTEROL
     Indication: Chronic obstructive pulmonary disease
     Dosage: 2 PUFF
     Route: 055
  14. FOLIC ACID [Concomitant]
     Active Substance: FOLIC ACID
     Indication: Prophylaxis
     Route: 048
     Dates: start: 20210705
  15. HYDROMORPHONE [Concomitant]
     Active Substance: HYDROMORPHONE
     Indication: Pain
     Route: 048
     Dates: start: 20210810
  16. LOPERAMIDE [Concomitant]
     Active Substance: LOPERAMIDE
     Indication: Diarrhoea
     Route: 048
     Dates: start: 20210831
  17. OLMESARTAN [Concomitant]
     Active Substance: OLMESARTAN
     Indication: Hypertension
     Route: 048
     Dates: start: 20210919, end: 20220727
  18. OLMESARTAN [Concomitant]
     Active Substance: OLMESARTAN
     Route: 048
     Dates: start: 20220801
  19. BENADRYL [Concomitant]
     Active Substance: DIPHENHYDRAMINE HYDROCHLORIDE
     Indication: Prophylaxis
     Route: 042
     Dates: start: 20211118, end: 20211118
  20. HYDROCORTISONE VALERATE [Concomitant]
     Active Substance: HYDROCORTISONE VALERATE
     Dates: start: 20210920
  21. HYDROCORTISONE [Concomitant]
     Active Substance: HYDROCORTISONE
     Indication: Prophylaxis
     Dates: start: 20211118, end: 20211118
  22. DIPHENHYDRAMINE [Concomitant]
     Active Substance: DIPHENHYDRAMINE
     Indication: Prophylaxis
     Route: 042
     Dates: start: 20211216, end: 20211216
  23. DIPHENHYDRAMINE [Concomitant]
     Active Substance: DIPHENHYDRAMINE
     Route: 042
     Dates: start: 20220113, end: 20220113
  24. DIPHENHYDRAMINE [Concomitant]
     Active Substance: DIPHENHYDRAMINE
     Route: 042
     Dates: start: 20220210, end: 20220210
  25. HYDROCORTISONE SODIUM SUCCINATE [Concomitant]
     Active Substance: HYDROCORTISONE SODIUM SUCCINATE
     Indication: Prophylaxis
     Dates: start: 20211216, end: 20211216
  26. HYDROCORTISONE SODIUM SUCCINATE [Concomitant]
     Active Substance: HYDROCORTISONE SODIUM SUCCINATE
     Dates: start: 20220113, end: 20220113
  27. HYDROCORTISONE SODIUM SUCCINATE [Concomitant]
     Active Substance: HYDROCORTISONE SODIUM SUCCINATE
     Dates: start: 20220210, end: 20220210
  28. CHOLECALCIFEROL [Concomitant]
     Active Substance: CHOLECALCIFEROL
     Indication: Prophylaxis
     Route: 048
     Dates: start: 2019, end: 20220601
  29. CEPHALEXIN MONOHYDRATE [Concomitant]
     Active Substance: CEPHALEXIN MONOHYDRATE
     Indication: Phlebitis
     Route: 048
     Dates: start: 20220112, end: 20220119
  30. AMOXICILLIN [Concomitant]
     Active Substance: AMOXICILLIN
     Indication: Gingival swelling
     Route: 048
     Dates: start: 20220220, end: 20220227
  31. AMOXICILLIN [Concomitant]
     Active Substance: AMOXICILLIN
     Indication: Pneumonia
     Route: 048
     Dates: start: 20221122, end: 20221129
  32. LUMIGAN [Concomitant]
     Active Substance: BIMATOPROST
     Indication: Glaucoma
     Route: 048
     Dates: start: 20220304
  33. SILVER SULFADIAZINE [Concomitant]
     Active Substance: SILVER SULFADIAZINE
     Indication: Photosensitivity reaction
     Route: 061
  34. FRAGMIN [Concomitant]
     Active Substance: DALTEPARIN SODIUM
     Dosage: 5000 U
     Route: 058
     Dates: start: 20220625
  35. JARDIANCE [Concomitant]
     Active Substance: EMPAGLIFLOZIN
     Indication: Hyperglycaemia
     Route: 048
     Dates: start: 20220209, end: 20220726
  36. UNSPECIFIED INGREDIENT [Concomitant]
     Active Substance: UNSPECIFIED INGREDIENT
     Route: 048
     Dates: start: 20220727, end: 20220729
  37. MAGNESIUM CITRATE [Concomitant]
     Active Substance: MAGNESIUM CITRATE
     Route: 048
     Dates: start: 20220515, end: 20220731
  38. CLOTRIMAZOLE [Concomitant]
     Active Substance: CLOTRIMAZOLE
     Indication: Vulvovaginal mycotic infection
     Route: 067
     Dates: start: 20220308, end: 20220314
  39. CLOTRIMAZOLE [Concomitant]
     Active Substance: CLOTRIMAZOLE
     Route: 067
     Dates: start: 20220331, end: 20220406
  40. HYDROCORTISONE VALERATE [Concomitant]
     Active Substance: HYDROCORTISONE VALERATE
     Indication: Rash
     Dates: start: 20210920
  41. HYDROCORTISONE VALERATE [Concomitant]
     Active Substance: HYDROCORTISONE VALERATE
     Indication: Pruritus
  42. LACTULOSE [Concomitant]
     Active Substance: LACTULOSE
     Indication: Constipation
     Route: 048
     Dates: start: 20220729, end: 20220730
  43. VITAMIN D3 [Concomitant]
     Active Substance: CHOLECALCIFEROL
     Dosage: 3000 U
     Route: 048
     Dates: start: 20220727, end: 20220731
  44. DALTEPARIN [Concomitant]
     Active Substance: DALTEPARIN
     Dosage: 5000 U
     Route: 057
     Dates: start: 20220726, end: 20220730
  45. DIMENHYDRINATE [Concomitant]
     Active Substance: DIMENHYDRINATE
     Route: 042
     Dates: start: 20220727, end: 20220729
  46. DIMENHYDRINATE [Concomitant]
     Active Substance: DIMENHYDRINATE
     Route: 057
     Dates: start: 20220726, end: 20220726
  47. DIMENHYDRINATE [Concomitant]
     Active Substance: DIMENHYDRINATE
     Route: 048
     Dates: start: 20220727, end: 20220731
  48. IBUPROFEN [Concomitant]
     Active Substance: IBUPROFEN
     Indication: Back pain
     Route: 048
     Dates: start: 20220728, end: 20220731
  49. INSULIN LISPRO [Concomitant]
     Active Substance: INSULIN LISPRO
     Indication: Hyperglycaemia
     Route: 057
     Dates: start: 20220726, end: 20220731
  50. IRBESARTAN [Concomitant]
     Active Substance: IRBESARTAN
     Indication: Hypertension
     Route: 048
     Dates: start: 20220728, end: 20220731
  51. LINAGLIPTIN [Concomitant]
     Active Substance: LINAGLIPTIN
     Indication: Hyperglycaemia
     Route: 046
     Dates: start: 20220727, end: 20220731
  52. MELATONIN [Concomitant]
     Active Substance: MELATONIN
     Route: 048
     Dates: start: 20220727, end: 20220728
  53. GLICLAZIDE [Concomitant]
     Active Substance: GLICLAZIDE
     Indication: Hyperglycaemia
     Route: 048
     Dates: start: 20220907, end: 20220926
  54. GLICLAZIDE [Concomitant]
     Active Substance: GLICLAZIDE
     Route: 048
     Dates: start: 20220927
  55. CLOTRIMAZOLE [Concomitant]
     Active Substance: CLOTRIMAZOLE
     Indication: Vulvovaginal mycotic infection
     Dates: start: 20221118, end: 20221120

REACTIONS (3)
  - Diabetic ketoacidosis [Recovered/Resolved]
  - Hyperglycaemia [Not Recovered/Not Resolved]
  - Hyperthyroidism [Recovering/Resolving]

NARRATIVE: CASE EVENT DATE: 20211201
